FAERS Safety Report 5502250-X (Version None)
Quarter: 2007Q4

REPORT INFORMATION
  Report Type: 
  Country: None (occurrence: None)
  Receive Date: 20071030
  Receipt Date: 20071019
  Transmission Date: 20080405
  Serious: Yes (Hospitalization, Other)
  Sender: FDA-Public Use
  Company Number: US-ELI_LILLY_AND_COMPANY-US200710005387

PATIENT
  Sex: Female

DRUGS (12)
  1. HUMALOG [Suspect]
     Dates: start: 19990101
  2. HUMALOG [Suspect]
     Dates: start: 19990101
  3. HUMALOG MIX 75/25 [Suspect]
  4. HUMULIN N [Suspect]
  5. COZAAR [Concomitant]
  6. ATENOLOL [Concomitant]
  7. NORVASC [Concomitant]
  8. SYNTHROID [Concomitant]
  9. PLAVIX [Concomitant]
  10. ASPIRIN [Concomitant]
  11. NEXIUM [Concomitant]
  12. VITAMIN E [Concomitant]
     Dosage: 5000 UNK, WEEKLY (1/W)

REACTIONS (10)
  - ABDOMINAL DISTENSION [None]
  - DYSPHONIA [None]
  - DYSPNOEA [None]
  - HEART VALVE OPERATION [None]
  - JOINT SWELLING [None]
  - RETINAL HAEMORRHAGE [None]
  - SNORING [None]
  - VISUAL ACUITY REDUCED [None]
  - VITREOUS FLOATERS [None]
  - WEIGHT INCREASED [None]
